FAERS Safety Report 21024201 (Version 2)
Quarter: 2022Q4

REPORT INFORMATION
  Report Type: Report from Study
  Country: US (occurrence: US)
  Receive Date: 20220629
  Receipt Date: 20221003
  Transmission Date: 20230112
  Serious: Yes (Life-Threatening, Hospitalization, Disabling, Other)
  Sender: FDA-Public Use
  Company Number: US-NOVARTISTESTPH-NVSC2022US147705

PATIENT
  Age: 65 Year
  Sex: Male

DRUGS (3)
  1. TASIGNA [Suspect]
     Active Substance: NILOTINIB
     Indication: Chronic myeloid leukaemia
     Dosage: UNK
     Route: 065
  2. TASIGNA [Suspect]
     Active Substance: NILOTINIB
     Dosage: 300 UNK, BID
     Route: 065
  3. ANTI DIABETES [Concomitant]
     Indication: Product used for unknown indication
     Dosage: UNK
     Route: 065

REACTIONS (1)
  - Ischaemic stroke [Recovered/Resolved with Sequelae]

NARRATIVE: CASE EVENT DATE: 20220301
